FAERS Safety Report 10399662 (Version 1)
Quarter: 2014Q3

REPORT INFORMATION
  Report Type: Spontaneous
  Country: ES (occurrence: None)
  Receive Date: 20140819
  Receipt Date: 20140819
  Transmission Date: 20150326
  Serious: Yes (Other)
  Sender: FDA-Public Use
  Company Number: IMP_07828_2014

PATIENT
  Age: 71 Year
  Sex: Male

DRUGS (1)
  1. DIPYRIDAMOLE (DIPYRIDAMOLE) [Suspect]
     Active Substance: DIPYRIDAMOLE
     Indication: CARDIAC STRESS TEST
     Dosage: [10ML OF PHYSIOLOGICAL SALINE SOLUTION ADMINISTERED OVER 4 MINUTES]?(NOT OTHERWISE SPECIFIED)
     Route: 042

REACTIONS (2)
  - Arteriospasm coronary [None]
  - Coronary artery stenosis [None]
